FAERS Safety Report 7134568-1 (Version None)
Quarter: 2010Q4

REPORT INFORMATION
  Report Type: 
  Country: None (occurrence: None)
  Receive Date: 20101203
  Receipt Date: 20101129
  Transmission Date: 20110411
  Serious: Yes (Death)
  Sender: FDA-Public Use
  Company Number: US-US-EMD SERONO, INC.-7027535

PATIENT
  Sex: Female
  Weight: 64 kg

DRUGS (7)
  1. REBIF [Suspect]
     Indication: MULTIPLE SCLEROSIS
     Route: 058
     Dates: start: 20080901, end: 20100501
  2. LEXAPRO [Concomitant]
     Indication: DYSTHYMIC DISORDER
     Dates: end: 20080101
  3. LEXAPRO [Concomitant]
     Indication: DEPRESSION
  4. MECLIZINE [Concomitant]
     Indication: VERTIGO
     Route: 048
     Dates: end: 20100501
  5. SONATA [Concomitant]
     Indication: INSOMNIA
     Route: 048
     Dates: start: 20070901, end: 20100501
  6. BACLOFEN [Concomitant]
     Route: 048
     Dates: start: 20081201, end: 20100501
  7. NAPROSYN [Concomitant]
     Indication: BACK PAIN
     Dates: start: 20081201, end: 20100501

REACTIONS (1)
  - COMPLETED SUICIDE [None]
